FAERS Safety Report 9517321 (Version 1)
Quarter: 2013Q3

REPORT INFORMATION
  Report Type: Spontaneous
  Country: US (occurrence: US)
  Receive Date: 20130911
  Receipt Date: 20130911
  Transmission Date: 20140515
  Serious: Yes (Other)
  Sender: FDA-Public Use
  Company Number: US-FRI-1000048453

PATIENT
  Sex: Male

DRUGS (2)
  1. NAMENDA XR [Suspect]
  2. ARICEPT [Suspect]

REACTIONS (1)
  - Mental impairment [Unknown]
